FAERS Safety Report 10025376 (Version 1)
Quarter: 2014Q1

REPORT INFORMATION
  Report Type: Spontaneous
  Country: US (occurrence: None)
  Receive Date: 20140304
  Receipt Date: 20140304
  Transmission Date: 20141002
  Serious: Yes (Death)
  Sender: FDA-Public Use
  Company Number: RB-45562-2012

PATIENT
  Sex: Male

DRUGS (2)
  1. SUBOXONE [Suspect]
     Indication: DRUG DEPENDENCE
     Dosage: (DOSAGE DETAILS NOT PROVIDED UNKNOWN)?
  2. HEROIN [Suspect]
     Indication: PRODUCT USED FOR UNKNOWN INDICATION
     Dosage: (DOSING DETAILS UNKNOWN UNKNOWN)?

REACTIONS (2)
  - Drug dependence [None]
  - Overdose [None]
